FAERS Safety Report 11273030 (Version 3)
Quarter: 2015Q4

REPORT INFORMATION
  Report Type: Spontaneous
  Country: CA (occurrence: CA)
  Receive Date: 20150715
  Receipt Date: 20151009
  Transmission Date: 20160304
  Serious: Yes (Death)
  Sender: FDA-Public Use
  Company Number: CA-PFIZER INC-2015230719

PATIENT
  Age: 62 Year
  Sex: Female

DRUGS (4)
  1. INLYTA [Suspect]
     Active Substance: AXITINIB
     Indication: METASTATIC RENAL CELL CARCINOMA
     Dosage: 4 MG 2X/DAY
     Route: 048
  2. SANDOZ-AMLODIPINE [Concomitant]
     Dosage: 5 MG, 1X/DAY
  3. TEVA-LORAZEPAM [Concomitant]
     Dosage: 1 MG, 1 TABLET AT NIGHT
  4. INLYTA [Suspect]
     Active Substance: AXITINIB
     Dosage: 3 MG 2X/DAY, CYCLIC
     Route: 048
     Dates: start: 20141120, end: 201504

REACTIONS (3)
  - Disease progression [Fatal]
  - Nausea [Unknown]
  - Metastatic renal cell carcinoma [Fatal]

NARRATIVE: CASE EVENT DATE: 201503
